FAERS Safety Report 8758621 (Version 1)
Quarter: 2012Q4

REPORT INFORMATION
  Report Type: 
  Country: None (occurrence: MX)
  Receive Date: 20120829
  Receipt Date: 20120829
  Transmission Date: 20130627
  Serious: Yes (Death, Hospitalization)
  Sender: FDA-Public Use
  Company Number: PHHY2012MX074480

PATIENT
  Age: 79 Year
  Sex: Male

DRUGS (1)
  1. UNKNOWN DRUG [Suspect]

REACTIONS (1)
  - No adverse event [None]
